FAERS Safety Report 19024830 (Version 1)
Quarter: 2021Q1

REPORT INFORMATION
  Report Type: Spontaneous
  Country: GB (occurrence: GB)
  Receive Date: 20210318
  Receipt Date: 20210318
  Transmission Date: 20210420
  Serious: Yes (Other)
  Sender: FDA-Public Use
  Company Number: GB-TEVA-2021-GB-1878320

PATIENT
  Age: 69 Year
  Sex: Male
  Weight: 79.37 kg

DRUGS (3)
  1. TEVA UK ROSUVASTATIN [Suspect]
     Active Substance: ROSUVASTATIN
     Indication: ILL-DEFINED DISORDER
     Route: 048
     Dates: start: 20201027, end: 20210127
  2. ASPIRIN. [Concomitant]
     Active Substance: ASPIRIN
     Indication: ILL-DEFINED DISORDER
  3. LOSARTAN POTASSIUM. [Concomitant]
     Active Substance: LOSARTAN POTASSIUM
     Indication: ILL-DEFINED DISORDER

REACTIONS (3)
  - Myalgia [Recovering/Resolving]
  - Insomnia [Recovered/Resolved]
  - Pain in extremity [Unknown]

NARRATIVE: CASE EVENT DATE: 202011
